FAERS Safety Report 16422997 (Version 4)
Quarter: 2019Q4

REPORT INFORMATION
  Report Type: Report from Study
  Country: DE (occurrence: DE)
  Receive Date: 20190612
  Receipt Date: 20191029
  Transmission Date: 20200122
  Serious: Yes (Hospitalization, Other)
  Sender: FDA-Public Use
  Company Number: DE-SHIRE-DE201916578

PATIENT

DRUGS (6)
  1. VPRIV [Suspect]
     Active Substance: VELAGLUCERASE ALFA
     Dosage: 3600 9 AMP, 1X/2WKS
     Route: 042
     Dates: start: 20191004, end: 20191004
  2. VPRIV [Suspect]
     Active Substance: VELAGLUCERASE ALFA
     Dosage: 3600 9 AMP, 1X/2WKS
     Route: 042
     Dates: start: 20190331, end: 20190531
  3. VPRIV [Suspect]
     Active Substance: VELAGLUCERASE ALFA
     Dosage: 3600 9 AMP, 1X/2WKS
     Route: 042
     Dates: start: 20190809, end: 20190809
  4. VPRIV [Suspect]
     Active Substance: VELAGLUCERASE ALFA
     Dosage: 3600 9 AMP, 1X/2WKS
     Route: 042
  5. VPRIV [Suspect]
     Active Substance: VELAGLUCERASE ALFA
     Dosage: 3600 MILLIGRAM 9 AMPULES, 1X/2WKS
     Route: 042
     Dates: start: 20191018
  6. VPRIV [Suspect]
     Active Substance: VELAGLUCERASE ALFA
     Indication: GAUCHER^S DISEASE
     Dosage: 3600 9 AMP, 1X/2WKS
     Route: 042
     Dates: start: 201703

REACTIONS (1)
  - Pancreatic cyst [Not Recovered/Not Resolved]

NARRATIVE: CASE EVENT DATE: 201710
